FAERS Safety Report 9232346 (Version 1)
Quarter: 2013Q2

REPORT INFORMATION
  Report Type: Spontaneous
  Country: US (occurrence: US)
  Receive Date: 20130416
  Receipt Date: 20130416
  Transmission Date: 20140414
  Serious: No
  Sender: FDA-Public Use
  Company Number: US-009507513-1304USA006433

PATIENT
  Age: 46 Year
  Sex: Female

DRUGS (1)
  1. VICTRELIS [Suspect]
     Indication: HEPATITIS C
     Dosage: 800 MG, TID
     Route: 048
     Dates: start: 20130316

REACTIONS (6)
  - Toothache [Unknown]
  - Dyspnoea [Unknown]
  - Injection site bruising [Unknown]
  - Dysgeusia [Unknown]
  - Fatigue [Unknown]
  - Arthralgia [Unknown]
